FAERS Safety Report 15746279 (Version 1)
Quarter: 2018Q4

REPORT INFORMATION
  Report Type: Spontaneous
  Country: IT (occurrence: IT)
  Receive Date: 20181220
  Receipt Date: 20181220
  Transmission Date: 20190205
  Serious: Yes (Hospitalization)
  Sender: FDA-Public Use
  Company Number: IT-MYLANLABS-2018M1093818

PATIENT
  Age: 79 Year
  Sex: Female

DRUGS (1)
  1. CARBIDOPA/LEVODOPA [Suspect]
     Active Substance: CARBIDOPA\LEVODOPA
     Indication: ON AND OFF PHENOMENON
     Dosage: FOR 9 YEARS
     Route: 065

REACTIONS (1)
  - Parkinsonism hyperpyrexia syndrome [Recovering/Resolving]

NARRATIVE: CASE EVENT DATE: 201708
